FAERS Safety Report 5295104-8 (Version None)
Quarter: 2007Q2

REPORT INFORMATION
  Report Type: 
  Country: None (occurrence: None)
  Receive Date: 20070412
  Receipt Date: 20070402
  Transmission Date: 20071010
  Serious: Yes (Death, Other)
  Sender: FDA-Public Use
  Company Number: 2007GB00557

PATIENT
  Age: 57 Year
  Sex: Female
  Weight: 58 kg

DRUGS (6)
  1. QUETIAPINE FUMARATE [Suspect]
     Indication: AGITATION
     Route: 048
     Dates: start: 20060901
  2. CLOMIPRAMINE HCL [Interacting]
     Indication: DEPRESSION
     Route: 048
     Dates: start: 20060101
  3. BUSPIRONE HCL [Concomitant]
  4. NORETHINDRONE ACETATE [Concomitant]
  5. OESTRADIOL [Concomitant]
  6. ZOPICLONE [Concomitant]

REACTIONS (3)
  - DRUG INTERACTION [None]
  - DRUG LEVEL INCREASED [None]
  - OVERDOSE [None]
